FAERS Safety Report 6759359-2 (Version None)
Quarter: 2010Q2

REPORT INFORMATION
  Report Type: 
  Country: None (occurrence: None)
  Receive Date: 20100607
  Receipt Date: 20100524
  Transmission Date: 20101027
  Serious: Yes (Other)
  Sender: FDA-Public Use
  Company Number: US-ELI_LILLY_AND_COMPANY-US201005006405

PATIENT
  Age: 50 Year
  Sex: Male
  Weight: 96 kg

DRUGS (11)
  1. CYMBALTA [Suspect]
     Indication: DEPRESSION
     Dosage: 1 D/F, UNKNOWN
     Route: 065
  2. CHANTIX                            /05703001/ [Concomitant]
     Indication: TOBACCO ABUSE
     Dosage: 0.5 MG, UNKNOWN
     Route: 048
     Dates: start: 20100309, end: 20100318
  3. NORCO [Concomitant]
     Indication: PAIN
  4. MORPHINE SULFATE [Concomitant]
     Indication: PAIN
  5. NEURONTIN [Concomitant]
  6. ACTOS [Concomitant]
  7. RANITIDINE [Concomitant]
  8. ALPRAZOLAM [Concomitant]
  9. TEMAZEPAM [Concomitant]
  10. SIMVASTATIN [Concomitant]
  11. MONOPRIL [Concomitant]

REACTIONS (7)
  - BLOOD GLUCOSE DECREASED [None]
  - DEPRESSION [None]
  - DRUG INEFFECTIVE [None]
  - FATIGUE [None]
  - INFLUENZA LIKE ILLNESS [None]
  - NAUSEA [None]
  - PAIN [None]
